FAERS Safety Report 4778618-6 (Version None)
Quarter: 2005Q3

REPORT INFORMATION
  Report Type: 
  Country: None (occurrence: None)
  Receive Date: 20050926
  Receipt Date: 20050919
  Transmission Date: 20060218
  Serious: Yes (Hospitalization)
  Sender: FDA-Public Use
  Company Number: PHBS2005IT13999

PATIENT
  Age: 80 Year
  Sex: Female

DRUGS (10)
  1. LIORESAL [Suspect]
     Indication: MUSCLE SPASMS
     Dosage: 25 MG, QD
     Route: 048
     Dates: start: 20050907, end: 20050907
  2. TICLOPIDINE HCL [Concomitant]
     Dosage: 250 MG, UNK
  3. SEROQUEL [Concomitant]
     Dosage: 25 MG, UNK
     Route: 048
  4. ZANEDIP [Concomitant]
     Dosage: 20 MG, UNK
  5. LASIX [Concomitant]
     Dosage: 25 MG, UNK
     Route: 048
  6. EUTIROX [Concomitant]
     Dosage: 50 UG, UNK
     Route: 048
  7. ACTRAPID HUMAN [Concomitant]
     Dosage: 12 IU, UNK
     Route: 058
  8. ACTRAPHANE HM [Concomitant]
     Dosage: 10 IU, UNK
     Route: 058
  9. ALLOPURINOL [Concomitant]
     Dosage: 300 MG, UNK
     Route: 048
  10. PARIET [Concomitant]
     Route: 048

REACTIONS (4)
  - CONFUSIONAL STATE [None]
  - COORDINATION ABNORMAL [None]
  - ECHOPRAXIA [None]
  - PSYCHOMOTOR HYPERACTIVITY [None]
